FAERS Safety Report 7588695-5 (Version None)
Quarter: 2011Q2

REPORT INFORMATION
  Report Type: 
  Country: None (occurrence: None)
  Receive Date: 20110628
  Receipt Date: 20110609
  Transmission Date: 20111010
  Serious: Yes (Hospitalization, Other)
  Sender: FDA-Public Use
  Company Number: GER/UKI/11/0018761

PATIENT
  Age: 50 Year
  Sex: Female
  Weight: 137 kg

DRUGS (2)
  1. AMLODIPINE [Suspect]
     Indication: HYPERTENSION
     Dosage: 77 DOSAGE FORMS, TOTAL, ORAL
     Route: 048
  2. LOSARTAN POTASSIUM [Suspect]
     Indication: HYPERTENSION
     Dosage: 104 DOSAGE FORMS, TOTAL, OTAL
     Route: 048

REACTIONS (14)
  - PULMONARY OEDEMA [None]
  - HYPOXIA [None]
  - BLOOD UREA INCREASED [None]
  - ANURIA [None]
  - METABOLIC ACIDOSIS [None]
  - BLOOD CREATININE INCREASED [None]
  - HYPOTENSION [None]
  - RENAL IMPAIRMENT [None]
  - VOMITING [None]
  - HYPERKALAEMIA [None]
  - MULTIPLE DRUG OVERDOSE INTENTIONAL [None]
  - BODY TEMPERATURE DECREASED [None]
  - BLOOD GLUCOSE INCREASED [None]
  - NO THERAPEUTIC RESPONSE [None]
